FAERS Safety Report 5341051-2 (Version None)
Quarter: 2007Q2

REPORT INFORMATION
  Report Type: 
  Country: None (occurrence: None)
  Receive Date: 20070530
  Receipt Date: 20070517
  Transmission Date: 20071010
  Serious: Yes (Hospitalization)
  Sender: FDA-Public Use
  Company Number: 156613USA

PATIENT
  Age: 68 Year
  Sex: Male

DRUGS (9)
  1. FLUOROURACIL [Suspect]
     Indication: COLORECTAL CANCER
     Dosage: 5856 MG 1/1 WEEK, INTRAVENOUS
     Route: 042
     Dates: start: 20070109, end: 20070109
  2. FOLINIC ACID [Suspect]
     Indication: COLORECTAL CANCER
     Dosage: 960 MG 1/2 WEEK, INTRAVENOUS
     Route: 042
     Dates: start: 20070109, end: 20070109
  3. CETUXIMAB [Suspect]
     Indication: COLORECTAL CANCER
     Dosage: 960 MG, INTRAVENOUS
     Route: 042
     Dates: start: 20070109, end: 20070109
  4. BEVACIZUMAB [Suspect]
     Indication: COLORECTAL CANCER
     Dosage: 620 MG 1/2 WEEK, INTRAVENOUS
     Route: 042
     Dates: start: 20070109, end: 20070109
  5. DOXAZOSIN MESYLATE [Concomitant]
  6. HYDROCHLOROTHIAZIDE [Concomitant]
  7. ALLOPURINOL [Concomitant]
  8. MELOXICAM [Concomitant]
  9. SERTRALINE [Concomitant]

REACTIONS (1)
  - COLITIS [None]
